FAERS Safety Report 13517226 (Version 1)
Quarter: 2017Q2

REPORT INFORMATION
  Report Type: Spontaneous
  Country: US (occurrence: US)
  Receive Date: 20170504
  Receipt Date: 20170504
  Transmission Date: 20170830
  Serious: Yes (Hospitalization)
  Sender: FDA-Public Use
  Company Number: None

PATIENT
  Age: 65 Year
  Sex: Male

DRUGS (2)
  1. TPA [Suspect]
     Active Substance: ALTEPLASE
  2. DORNASE ALFA [Suspect]
     Active Substance: DORNASE ALFA

REACTIONS (3)
  - Tachypnoea [None]
  - Tachycardia [None]
  - Oxygen saturation decreased [None]

NARRATIVE: CASE EVENT DATE: 20170113
